FAERS Safety Report 5243631-1 (Version None)
Quarter: 2007Q1

REPORT INFORMATION
  Report Type: 
  Country: None (occurrence: None)
  Receive Date: 20070222
  Receipt Date: 20070213
  Transmission Date: 20070707
  Serious: Yes (Other)
  Sender: FDA-Public Use
  Company Number: 2007UW02992

PATIENT
  Age: 42 Year
  Sex: Female

DRUGS (8)
  1. SEROQUEL [Suspect]
     Route: 048
  2. SEROQUEL [Suspect]
     Route: 048
     Dates: end: 20070208
  3. LAMICTAL [Concomitant]
  4. LUNESTA [Concomitant]
  5. LANTUS [Concomitant]
  6. ATIVAN [Concomitant]
  7. VICODIN [Concomitant]
  8. THYROID TAB [Concomitant]

REACTIONS (2)
  - BLOOD GLUCOSE INCREASED [None]
  - DRUG EXPOSURE DURING PREGNANCY [None]
